FAERS Safety Report 6521028-1 (Version None)
Quarter: 2009Q4

REPORT INFORMATION
  Report Type: 
  Country: None (occurrence: None)
  Receive Date: 20091229
  Receipt Date: 20091218
  Transmission Date: 20100525
  Serious: Yes (Other)
  Sender: FDA-Public Use
  Company Number: US-BAXTER-2009BH015297

PATIENT
  Age: 7 Month
  Sex: Female

DRUGS (3)
  1. DEXTROSE 5% AND SODIUM CHLORIDE 0.2% IN PLASTIC CONTAINER [Suspect]
     Indication: DRUG USE FOR UNKNOWN INDICATION
     Route: 042
     Dates: start: 20091001
  2. SOLU-MEDROL [Concomitant]
     Indication: DRUG USE FOR UNKNOWN INDICATION
     Route: 042
     Dates: start: 20091001
  3. ROCEPHIN [Concomitant]
     Indication: DRUG USE FOR UNKNOWN INDICATION
     Route: 042
     Dates: start: 20091001

REACTIONS (5)
  - INJECTION SITE EXTRAVASATION [None]
  - JOINT SWELLING [None]
  - OEDEMA PERIPHERAL [None]
  - PALLOR [None]
  - SKIN TIGHTNESS [None]
